FAERS Safety Report 4557881-0 (Version None)
Quarter: 2005Q1

REPORT INFORMATION
  Report Type: 
  Country: None (occurrence: None)
  Receive Date: 20050121
  Receipt Date: 20031113
  Transmission Date: 20050727
  Serious: No
  Sender: FDA-Public Use
  Company Number: US-BRISTOL-MYERS SQUIBB COMPANY-12435640

PATIENT
  Age: 46 Year
  Sex: Male
  Weight: 67 kg

DRUGS (10)
  1. SERZONE [Suspect]
     Indication: DEPRESSION
     Route: 048
     Dates: start: 19980527
  2. METOPROLOL [Concomitant]
  3. DILANTIN [Concomitant]
  4. REGLAN [Concomitant]
  5. ZANTAC [Concomitant]
  6. NEXIUM [Concomitant]
  7. MAALOX PLUS [Concomitant]
  8. CENTRUM [Concomitant]
  9. SIMETHICONE [Concomitant]
  10. NASONEX [Concomitant]
     Route: 045

REACTIONS (3)
  - ALANINE AMINOTRANSFERASE INCREASED [None]
  - ASPARTATE AMINOTRANSFERASE INCREASED [None]
  - GAMMA-GLUTAMYLTRANSFERASE INCREASED [None]
